FAERS Safety Report 19714825 (Version 1)
Quarter: 2021Q3

REPORT INFORMATION
  Report Type: Spontaneous
  Country: JP (occurrence: JP)
  Receive Date: 20210818
  Receipt Date: 20210818
  Transmission Date: 20211014
  Serious: Yes (Hospitalization, Other)
  Sender: FDA-Public Use
  Company Number: JP-BION-009997

PATIENT
  Sex: Male

DRUGS (3)
  1. VALPROIC ACID. [Suspect]
     Active Substance: VALPROIC ACID
     Indication: FRONTAL LOBE EPILEPSY
     Route: 064
  2. PHENYTOIN. [Suspect]
     Active Substance: PHENYTOIN
     Indication: FRONTAL LOBE EPILEPSY
     Route: 064
  3. OXYTOCIN/OXYTOCIN CITRATE [Concomitant]
     Active Substance: OXYTOCIN CITRATE

REACTIONS (2)
  - Foetal heart rate decreased [Unknown]
  - Foetal exposure during pregnancy [Unknown]
